FAERS Safety Report 12274722 (Version 1)
Quarter: 2016Q2

REPORT INFORMATION
  Report Type: Spontaneous
  Country: US (occurrence: US)
  Receive Date: 20160415
  Receipt Date: 20160415
  Transmission Date: 20160815
  Serious: No
  Sender: FDA-Public Use
  Company Number: US-ALLERGAN-1508367US

PATIENT
  Sex: Female

DRUGS (2)
  1. CLARITIN [Concomitant]
     Active Substance: LORATADINE
     Indication: SEASONAL ALLERGY
     Route: 048
  2. LATISSE [Suspect]
     Active Substance: BIMATOPROST
     Indication: GROWTH OF EYELASHES
     Dosage: 1 GTT, QAM
     Route: 061

REACTIONS (7)
  - Eyelid cyst [Recovered/Resolved]
  - Weight fluctuation [Not Recovered/Not Resolved]
  - Eyelids pruritus [Recovered/Resolved]
  - Muscle twitching [Not Recovered/Not Resolved]
  - Wrong technique in product usage process [Unknown]
  - Muscle twitching [Recovered/Resolved]
  - Inappropriate schedule of drug administration [Unknown]
